FAERS Safety Report 18332184 (Version 1)
Quarter: 2020Q3

REPORT INFORMATION
  Report Type: Spontaneous
  Country: US (occurrence: US)
  Receive Date: 20200930
  Receipt Date: 20200930
  Transmission Date: 20201103
  Serious: No
  Sender: FDA-Public Use
  Company Number: US-TRIS PHARMA, INC.-20US009088

PATIENT

DRUGS (10)
  1. HYDROCODONE + APAP [Suspect]
     Active Substance: ACETAMINOPHEN\HYDROCODONE BITARTRATE
     Indication: MIGRAINE
     Dosage: UNK, WITH EXTRA DOSES
     Route: 065
     Dates: start: 202009
  2. BOSENTAN. [Suspect]
     Active Substance: BOSENTAN
     Dosage: 125 MILLIGRAM, BID
     Route: 048
     Dates: start: 20190610
  3. OTHER THERAPEUTIC PRODUCTS [Concomitant]
     Active Substance: UNSPECIFIED INGREDIENT
     Indication: PRODUCT USED FOR UNKNOWN INDICATION
     Dosage: UNK
     Route: 065
  4. ORENITRAM [Concomitant]
     Active Substance: TREPROSTINIL
     Indication: PRODUCT USED FOR UNKNOWN INDICATION
     Dosage: UNK
     Route: 065
  5. STOOL SOFTENER (DOCUSATE) [Concomitant]
     Active Substance: DOCUSATE
     Indication: FAECES HARD
     Dosage: UNK
     Route: 065
  6. OXYGEN. [Concomitant]
     Active Substance: OXYGEN
     Indication: OXYGEN THERAPY
     Dosage: 3 LITER
     Route: 045
     Dates: start: 2004
  7. HYDROCODONE + APAP [Suspect]
     Active Substance: ACETAMINOPHEN\HYDROCODONE BITARTRATE
     Indication: ARTHRALGIA
     Dosage: UNK
     Route: 065
  8. BOSENTAN. [Suspect]
     Active Substance: BOSENTAN
     Indication: PULMONARY ARTERIAL HYPERTENSION
     Dosage: 125 MILLIGRAM
     Route: 048
  9. IRON [Concomitant]
     Active Substance: IRON
     Indication: IRON DEFICIENCY
     Dosage: UNK
     Route: 065
  10. SILDENAFIL [SILDENAFIL CITRATE] [Concomitant]
     Active Substance: SILDENAFIL CITRATE
     Indication: PRODUCT USED FOR UNKNOWN INDICATION
     Dosage: UNK
     Route: 065

REACTIONS (5)
  - Fall [Recovered/Resolved]
  - Arthralgia [Not Recovered/Not Resolved]
  - Constipation [Not Recovered/Not Resolved]
  - Wrist fracture [Not Recovered/Not Resolved]
  - Intentional product misuse [Unknown]

NARRATIVE: CASE EVENT DATE: 202009
